FAERS Safety Report 15193030 (Version 1)
Quarter: 2018Q3

REPORT INFORMATION
  Report Type: Spontaneous
  Country: US (occurrence: US)
  Receive Date: 20180725
  Receipt Date: 20180725
  Transmission Date: 20181010
  Serious: No
  Sender: FDA-Public Use
  Company Number: US-TEVA-800050USA

PATIENT
  Age: 69 Year
  Sex: Female

DRUGS (5)
  1. METHOCARBAMOL. [Concomitant]
     Active Substance: METHOCARBAMOL
  2. SERTRALINE [Concomitant]
     Active Substance: SERTRALINE HYDROCHLORIDE
  3. CLONAZEPAM. [Concomitant]
     Active Substance: CLONAZEPAM
  4. RASAGILINE MESYLATE. [Suspect]
     Active Substance: RASAGILINE MESYLATE
     Indication: PARKINSON^S DISEASE
     Dosage: 1 MILLIGRAM DAILY;
     Dates: start: 201706
  5. OLANZAPINE. [Concomitant]
     Active Substance: OLANZAPINE

REACTIONS (4)
  - Drug ineffective [Unknown]
  - Agitation [Unknown]
  - Irritability [Unknown]
  - Feeling abnormal [Unknown]
